FAERS Safety Report 6657663-X (Version None)
Quarter: 2010Q1

REPORT INFORMATION
  Report Type: 
  Country: None (occurrence: None)
  Receive Date: 20100326
  Receipt Date: 20100317
  Transmission Date: 20100710
  Serious: Yes (Other)
  Sender: FDA-Public Use
  Company Number: USA/USA/10/0010267

PATIENT
  Age: 76 Year
  Sex: Male

DRUGS (7)
  1. GLIMEPIRIDE [Suspect]
     Indication: DIABETES MELLITUS
     Dosage: 6 MG, 1 IN 1 D, PER ORAL
     Route: 048
     Dates: start: 20091029, end: 20100103
  2. TRIAL DRUG (ALL OTHER THERAPEUTIC PRODUCTS) [Suspect]
     Indication: DIABETES MELLITUS
     Dosage: PER ORAL
     Route: 048
  3. DILTIAZEM [Suspect]
     Indication: HYPERTENSION
     Dosage: 60 MG, 3 IN 1 D, PER ORAL
     Route: 048
     Dates: start: 20071022
  4. FUROSEMIDE [Suspect]
     Indication: HYPERTENSION
     Dosage: 40 MG, 1 IN 1 D, PER ORAL
     Route: 048
     Dates: start: 20071022
  5. POTASSIUM GLUCONATE TAB [Suspect]
     Indication: SUPPLEMENTATION THERAPY
     Dosage: 550 MG, 1 IN 1 D, PER ORAL
     Route: 048
     Dates: start: 20081016
  6. FISH OIL (FISH OIL) [Suspect]
     Indication: SUPPLEMENTATION THERAPY
     Dosage: PER ORAL
     Route: 048
     Dates: start: 20081016
  7. WARFARIN SODIUM [Suspect]
     Indication: EMBOLISM
     Dosage: 10 MG T, TH, F, AND 20 MG M, W, SAT
     Dates: start: 20080115

REACTIONS (2)
  - PANCREATIC PSEUDOCYST [None]
  - PROSTATE CANCER [None]
